FAERS Safety Report 19603104 (Version 1)
Quarter: 2021Q3

REPORT INFORMATION
  Report Type: Spontaneous
  Country: US (occurrence: US)
  Receive Date: 20210723
  Receipt Date: 20210723
  Transmission Date: 20211014
  Serious: Yes (Other)
  Sender: FDA-Public Use
  Company Number: US-TEVA-2021-US-1935026

PATIENT

DRUGS (2)
  1. DEXTROAMPHET SACCHARAT, AMPHET ASPARTATE, DEXTROAMPHET SULFATE AND AMPHET SULFAT [Suspect]
     Active Substance: AMPHETAMINE ASPARTATE\AMPHETAMINE SULFATE\DEXTROAMPHETAMINE SACCHARATE\DEXTROAMPHETAMINE SULFATE
     Route: 065
  2. DEXTROAMPHET SACCHARAT, AMPHET ASPARTATE, DEXTROAMPHET SULFATE AND AMPHET SULFAT [Suspect]
     Active Substance: AMPHETAMINE ASPARTATE\AMPHETAMINE SULFATE\DEXTROAMPHETAMINE SACCHARATE\DEXTROAMPHETAMINE SULFATE
     Dosage: POTENCY? 5MG, 5MG, 5MG, 5MG, BLUE CAPSULE
     Route: 065

REACTIONS (11)
  - Loss of personal independence in daily activities [Unknown]
  - Scoliosis [Unknown]
  - Quality of life decreased [Unknown]
  - Myalgia [Unknown]
  - Product substitution issue [Unknown]
  - Mental fatigue [Unknown]
  - Drug ineffective [Unknown]
  - Depression [Unknown]
  - Muscle tightness [Unknown]
  - Confusional state [Unknown]
  - Dry mouth [Unknown]
